FAERS Safety Report 18958377 (Version 2)
Quarter: 2021Q1

REPORT INFORMATION
  Report Type: Report from Study
  Country: US (occurrence: US)
  Receive Date: 20210302
  Receipt Date: 20210309
  Transmission Date: 20210420
  Serious: Yes (Hospitalization)
  Sender: FDA-Public Use
  Company Number: US-BRISTOL-MYERS SQUIBB COMPANY-BMS-2021-016760

PATIENT
  Age: 54 Year
  Sex: Male
  Weight: 51.8 kg

DRUGS (3)
  1. IPILIMUMAB [Suspect]
     Active Substance: IPILIMUMAB
     Dosage: 53 MILLIGRAM, Q3WK
     Route: 042
     Dates: start: 20210127
  2. NIVOLUMAB [Suspect]
     Active Substance: NIVOLUMAB
     Indication: SARCOMA
     Dosage: 3 MILLIGRAM/KILOGRAM, Q3WK CYCLE 1
     Route: 042
     Dates: start: 20201209
  3. IPILIMUMAB [Suspect]
     Active Substance: IPILIMUMAB
     Indication: SARCOMA
     Dosage: 62 MILLIGRAM, Q3WK
     Route: 042
     Dates: start: 20201209

REACTIONS (1)
  - Anaemia [Recovered/Resolved]

NARRATIVE: CASE EVENT DATE: 20210217
